FAERS Safety Report 21823899 (Version 10)
Quarter: 2024Q3

REPORT INFORMATION
  Report Type: Spontaneous
  Country: CA (occurrence: CA)
  Receive Date: 20230105
  Receipt Date: 20240708
  Transmission Date: 20241017
  Serious: Yes (Death, Other)
  Sender: PFIZER
  Company Number: CA-PFIZER INC-202200165581

PATIENT
  Age: 86 Year
  Sex: Female
  Weight: 60.6 kg

DRUGS (9)
  1. IBRANCE [Suspect]
     Active Substance: PALBOCICLIB
     Indication: Breast cancer metastatic
     Dosage: 100 MG CYCLIC (DAILY FOR 21 DAYS, OFF 7 DAYS)
     Route: 048
     Dates: start: 20170117
  2. IBRANCE [Suspect]
     Active Substance: PALBOCICLIB
     Dosage: 100 MG, CYCLIC (DAILY FOR 21 DAYS, OFF 7 DAYS)
     Route: 048
     Dates: start: 20220127
  3. IBRANCE [Suspect]
     Active Substance: PALBOCICLIB
     Dosage: 100 MG, CYCLIC (DAILY FOR 21 DAYS, OFF 7 DAYS)
     Route: 048
     Dates: start: 20220224
  4. IBRANCE [Suspect]
     Active Substance: PALBOCICLIB
     Dosage: 100 MG, CYCLIC (DAILY FOR 21 DAYS, OFF/STOP FOR 7 DAYS)
     Route: 048
  5. IBRANCE [Suspect]
     Active Substance: PALBOCICLIB
     Dosage: 75 MG, CYCLIC (DAILY FOR 21 DAYS, STOP FOR 7 DAYS)
     Route: 048
  6. LETROZOLE [Concomitant]
     Active Substance: LETROZOLE
     Indication: Breast cancer metastatic
     Dosage: DAY 1, CYCLE 18
  7. LETROZOLE [Concomitant]
     Active Substance: LETROZOLE
     Dosage: DAY 1, CYCLE 19
  8. LETROZOLE [Concomitant]
     Active Substance: LETROZOLE
     Dosage: DAY 1, CYCLE 20
  9. LETROZOLE [Concomitant]
     Active Substance: LETROZOLE
     Dosage: UNK, DAY1, CYCLE 22

REACTIONS (5)
  - Death [Fatal]
  - Creatinine renal clearance decreased [Unknown]
  - Neutrophil count decreased [Unknown]
  - Body surface area decreased [Unknown]
  - Neutrophil count increased [Unknown]

NARRATIVE: CASE EVENT DATE: 20220811
